FAERS Safety Report 12650077 (Version 10)
Quarter: 2017Q1

REPORT INFORMATION
  Report Type: Report from Study
  Country: JP (occurrence: JP)
  Receive Date: 20160813
  Receipt Date: 20170218
  Transmission Date: 20170428
  Serious: Yes (Hospitalization, Other)
  Sender: FDA-Public Use
  Company Number: JP-AMGEN-JPNCT2016062965

PATIENT
  Age: 65 Year
  Sex: Female
  Weight: 39.7 kg

DRUGS (52)
  1. PANITUMUMAB [Suspect]
     Active Substance: PANITUMUMAB
     Dosage: 230 MG, Q2WK
     Route: 041
     Dates: start: 20160603, end: 20160708
  2. 5-FU [Suspect]
     Active Substance: FLUOROURACIL
     Dosage: 500 MG, Q2WEEKS
     Route: 040
     Dates: start: 20160415, end: 20160415
  3. 5-FU [Suspect]
     Active Substance: FLUOROURACIL
     Dosage: 3100 MG, Q2WEEKS
     Route: 041
     Dates: start: 20160801, end: 20160801
  4. ELPLAT [Suspect]
     Active Substance: OXALIPLATIN
     Dosage: 80 MG, Q2WEEKS
     Route: 041
     Dates: start: 20160920, end: 20160920
  5. CALCIUM LEVOFOLINATE [Suspect]
     Active Substance: LEVOLEUCOVORIN CALCIUM
     Dosage: 250 MG, Q2WEEKS
     Route: 041
     Dates: start: 20160415, end: 20160415
  6. CALCIUM LEVOFOLINATE [Suspect]
     Active Substance: LEVOLEUCOVORIN CALCIUM
     Dosage: 250 MG, Q2WEEKS
     Route: 041
     Dates: start: 20160510, end: 20160510
  7. 5-FU [Suspect]
     Active Substance: FLUOROURACIL
     Dosage: 500 MG, Q2WK
     Route: 040
     Dates: start: 20160603, end: 20160708
  8. 5-FU [Suspect]
     Active Substance: FLUOROURACIL
     Dosage: 3100 MG, Q2WEEKS
     Route: 041
     Dates: start: 20160603, end: 20160708
  9. 5-FU [Suspect]
     Active Substance: FLUOROURACIL
     Dosage: 3100 MG, Q2WEEKS
     Route: 041
     Dates: start: 20160824, end: 20160824
  10. ANTEBATE [Concomitant]
     Active Substance: BETAMETHASONE DIPROPIONATE
     Indication: RASH
     Dosage: UNK UNK, BID
     Route: 062
     Dates: start: 20160322
  11. PANITUMUMAB [Suspect]
     Active Substance: PANITUMUMAB
     Indication: COLON CANCER
     Dosage: 230 MG, Q2WK
     Route: 041
     Dates: start: 20160322, end: 20160322
  12. PANITUMUMAB [Suspect]
     Active Substance: PANITUMUMAB
     Dosage: 230 MG, Q2WK
     Route: 041
     Dates: start: 20161014, end: 20161014
  13. CALCIUM LEVOFOLINATE [Suspect]
     Active Substance: LEVOLEUCOVORIN CALCIUM
     Dosage: 250 MG, Q2WEEKS
     Route: 041
     Dates: start: 20160824, end: 20160824
  14. 5-FU [Suspect]
     Active Substance: FLUOROURACIL
     Dosage: 3100 MG, Q2WEEKS
     Route: 041
     Dates: start: 20160510, end: 20160510
  15. 5-FU [Suspect]
     Active Substance: FLUOROURACIL
     Dosage: 3100 MG, Q2WEEKS
     Route: 041
     Dates: start: 20160920, end: 20160920
  16. 5-FU [Suspect]
     Active Substance: FLUOROURACIL
     Dosage: 3100 MG, Q2WEEKS
     Route: 041
     Dates: start: 20161014, end: 20161014
  17. URSO [Concomitant]
     Active Substance: URSODIOL
     Indication: HEPATIC FUNCTION ABNORMAL
     Dosage: 100 MG, TID
     Route: 048
     Dates: start: 20160527, end: 20161201
  18. PANITUMUMAB [Suspect]
     Active Substance: PANITUMUMAB
     Dosage: 230 MG, Q2WK
     Route: 041
     Dates: start: 20160801, end: 20160801
  19. PANITUMUMAB [Suspect]
     Active Substance: PANITUMUMAB
     Dosage: 230 MG, Q2WK
     Route: 041
     Dates: start: 20160920, end: 20160920
  20. PANITUMUMAB [Suspect]
     Active Substance: PANITUMUMAB
     Dosage: 230 MG, Q2WK
     Route: 041
     Dates: start: 20161109, end: 20161109
  21. ELPLAT [Suspect]
     Active Substance: OXALIPLATIN
     Dosage: 110 MG, Q2WEEKS
     Route: 041
     Dates: start: 20160801, end: 20160801
  22. CALCIUM LEVOFOLINATE [Suspect]
     Active Substance: LEVOLEUCOVORIN CALCIUM
     Dosage: 250 MG, Q2WEEKS
     Route: 041
     Dates: start: 20161109, end: 20161109
  23. 5-FU [Suspect]
     Active Substance: FLUOROURACIL
     Dosage: 200 MG/M2, Q2WK
     Route: 040
     Dates: start: 20161109, end: 20161109
  24. MINOMYCIN [Concomitant]
     Active Substance: MINOCYCLINE HYDROCHLORIDE
     Indication: PROPHYLAXIS
     Dosage: UNK
     Route: 048
     Dates: start: 20160322, end: 20161122
  25. PANITUMUMAB [Suspect]
     Active Substance: PANITUMUMAB
     Dosage: 230 MG, Q2WK
     Route: 041
     Dates: start: 20160824, end: 20160824
  26. ELPLAT [Suspect]
     Active Substance: OXALIPLATIN
     Indication: COLON CANCER
     Dosage: 110 MG, Q2WEEKS
     Route: 041
     Dates: start: 20160322, end: 20160322
  27. ELPLAT [Suspect]
     Active Substance: OXALIPLATIN
     Dosage: 110 MG, Q2WEEKS
     Route: 041
     Dates: start: 20160510, end: 20160510
  28. ELPLAT [Suspect]
     Active Substance: OXALIPLATIN
     Dosage: 80 MG, Q2WEEKS
     Route: 041
     Dates: start: 20161014, end: 20161014
  29. CALCIUM LEVOFOLINATE [Suspect]
     Active Substance: LEVOLEUCOVORIN CALCIUM
     Indication: COLON CANCER
     Dosage: 250 MG, Q2WEEKS
     Route: 041
     Dates: start: 20160322, end: 20160322
  30. 5-FU [Suspect]
     Active Substance: FLUOROURACIL
     Dosage: 500 MG, Q2WK
     Route: 040
     Dates: start: 20160801, end: 20160801
  31. 5-FU [Suspect]
     Active Substance: FLUOROURACIL
     Dosage: 500 MG, Q2WK
     Route: 040
     Dates: start: 20160824, end: 20160824
  32. 5-FU [Suspect]
     Active Substance: FLUOROURACIL
     Dosage: 200 MG/M2, Q2WK
     Route: 040
     Dates: start: 20160920, end: 20160920
  33. ELPLAT [Suspect]
     Active Substance: OXALIPLATIN
     Dosage: 80 MG, Q2WEEKS
     Route: 041
     Dates: start: 20161109, end: 20161109
  34. CALCIUM LEVOFOLINATE [Suspect]
     Active Substance: LEVOLEUCOVORIN CALCIUM
     Dosage: 250 MG, Q2WEEKS
     Route: 041
     Dates: start: 20160920, end: 20160920
  35. CALCIUM LEVOFOLINATE [Suspect]
     Active Substance: LEVOLEUCOVORIN CALCIUM
     Dosage: 250 MG, Q2WEEKS
     Route: 041
     Dates: start: 20161014, end: 20161014
  36. 5-FU [Suspect]
     Active Substance: FLUOROURACIL
     Indication: COLON CANCER
     Dosage: 500 MG, Q2WK
     Route: 040
     Dates: start: 20160322, end: 20160322
  37. 5-FU [Suspect]
     Active Substance: FLUOROURACIL
     Dosage: 3100 MG, Q2WEEKS
     Route: 041
     Dates: start: 20161109, end: 20161111
  38. PARIET [Concomitant]
     Active Substance: RABEPRAZOLE SODIUM
     Indication: ANTACID THERAPY
     Dosage: 10 MG, QD
     Route: 048
     Dates: start: 20160415, end: 20161201
  39. ELPLAT [Suspect]
     Active Substance: OXALIPLATIN
     Dosage: 110 MG, Q2WEEKS
     Route: 041
     Dates: start: 20160603, end: 20160708
  40. 5-FU [Suspect]
     Active Substance: FLUOROURACIL
     Dosage: 3100 MG, Q2WEEKS
     Route: 041
     Dates: start: 20160322, end: 20160322
  41. 5-FU [Suspect]
     Active Substance: FLUOROURACIL
     Dosage: 3100 MG, Q2WEEKS
     Route: 041
     Dates: start: 20160415, end: 20160415
  42. 5-FU [Suspect]
     Active Substance: FLUOROURACIL
     Dosage: 200 MG/M2, Q2WK
     Route: 040
     Dates: start: 20161014, end: 20161014
  43. HIRUDOID [Concomitant]
     Active Substance: GLYCOSAMINOGLYCANS
     Indication: DRY SKIN PROPHYLAXIS
     Dosage: UNK UNK, QID
     Route: 062
     Dates: start: 20160603
  44. LIDOMEX [Concomitant]
     Active Substance: PREDNISOLONE VALERATE ACETATE
     Indication: RASH
     Dosage: UNK UNK, BID
     Route: 062
     Dates: start: 20160322
  45. PANITUMUMAB [Suspect]
     Active Substance: PANITUMUMAB
     Dosage: 230 MG, Q2WK
     Route: 041
     Dates: start: 20160415, end: 20160415
  46. PANITUMUMAB [Suspect]
     Active Substance: PANITUMUMAB
     Dosage: 230 MG, Q2WK
     Route: 041
     Dates: start: 20160510, end: 20160510
  47. ELPLAT [Suspect]
     Active Substance: OXALIPLATIN
     Dosage: 110 MG, Q2WEEKS
     Route: 041
     Dates: start: 20160415, end: 20160415
  48. ELPLAT [Suspect]
     Active Substance: OXALIPLATIN
     Dosage: 110 MG, Q2WEEKS
     Route: 041
     Dates: start: 20160824, end: 20160824
  49. CALCIUM LEVOFOLINATE [Suspect]
     Active Substance: LEVOLEUCOVORIN CALCIUM
     Dosage: 250 MG, Q2WEEKS
     Route: 041
     Dates: start: 20160603, end: 20160708
  50. CALCIUM LEVOFOLINATE [Suspect]
     Active Substance: LEVOLEUCOVORIN CALCIUM
     Dosage: 250 MG, Q2WEEKS
     Route: 041
     Dates: start: 20160801, end: 20160801
  51. 5-FU [Suspect]
     Active Substance: FLUOROURACIL
     Dosage: 500 MG, Q2WK
     Route: 040
     Dates: start: 20160510, end: 20160510
  52. HIRUDOID [Concomitant]
     Active Substance: GLYCOSAMINOGLYCANS
     Dosage: UNK UNK, BID
     Route: 062
     Dates: start: 20160223

REACTIONS (16)
  - Decreased appetite [Recovered/Resolved]
  - Stomatitis [Not Recovered/Not Resolved]
  - Blood bilirubin increased [Recovered/Resolved]
  - Dysgeusia [Not Recovered/Not Resolved]
  - Dry skin [Not Recovered/Not Resolved]
  - Aspartate aminotransferase increased [Not Recovered/Not Resolved]
  - Cholangitis [Recovering/Resolving]
  - Alanine aminotransferase increased [Not Recovered/Not Resolved]
  - Pigmentation disorder [Not Recovered/Not Resolved]
  - White blood cell count decreased [Recovered/Resolved]
  - Dermatitis acneiform [Not Recovered/Not Resolved]
  - Hypoalbuminaemia [Not Recovered/Not Resolved]
  - Decreased appetite [Unknown]
  - Nausea [Not Recovered/Not Resolved]
  - Peripheral sensory neuropathy [Not Recovered/Not Resolved]
  - Neutrophil count decreased [Recovered/Resolved]

NARRATIVE: CASE EVENT DATE: 20161201
